FAERS Safety Report 9979516 (Version 2)
Quarter: 2014Q1

REPORT INFORMATION
  Report Type: Spontaneous
  Country: US (occurrence: US)
  Receive Date: 20140306
  Receipt Date: 20140306
  Transmission Date: 20141002
  Serious: No
  Sender: FDA-Public Use
  Company Number: US-ABBVIE-13P-163-1137096-00

PATIENT
  Age: 19 Year
  Sex: Female
  Weight: 71.28 kg

DRUGS (3)
  1. HUMIRA [Suspect]
     Indication: CROHN^S DISEASE
     Dosage: 1ST LOADING DOSE, EVENTUALLY WILL BE DOING 40 MG Q2 WEEKS.
     Route: 058
     Dates: start: 20130401, end: 20130401
  2. VALTREX [Concomitant]
     Indication: HERPES VIRUS INFECTION
  3. LOESTRIN [Concomitant]
     Indication: PRODUCT USED FOR UNKNOWN INDICATION

REACTIONS (1)
  - Haematuria [Not Recovered/Not Resolved]
